FAERS Safety Report 6946311-7 (Version None)
Quarter: 2010Q3

REPORT INFORMATION
  Report Type: 
  Country: None (occurrence: None)
  Receive Date: 20100824
  Receipt Date: 20100810
  Transmission Date: 20110219
  Serious: Yes (Hospitalization)
  Sender: FDA-Public Use
  Company Number: 017026

PATIENT
  Sex: Female

DRUGS (4)
  1. CIMZIA [Suspect]
     Dosage: SUBCUTANEOUS, SUBCUTANEOUS
     Route: 058
     Dates: start: 20090901
  2. CIMZIA [Suspect]
     Dosage: SUBCUTANEOUS, SUBCUTANEOUS
     Route: 058
     Dates: start: 20100805
  3. VALIUM [Concomitant]
  4. BENADRYL [Concomitant]

REACTIONS (6)
  - ANXIETY [None]
  - CROHN'S DISEASE [None]
  - MIGRAINE [None]
  - PANIC ATTACK [None]
  - REFUSAL OF TREATMENT BY PATIENT [None]
  - WITHDRAWAL SYNDROME [None]
